FAERS Safety Report 10233632 (Version 1)
Quarter: 2014Q2

REPORT INFORMATION
  Report Type: Spontaneous
  Country: GB (occurrence: GB)
  Receive Date: 20140612
  Receipt Date: 20140612
  Transmission Date: 20141212
  Serious: Yes (Hospitalization)
  Sender: FDA-Public Use
  Company Number: GB-JNJFOC-20140604168

PATIENT
  Age: 60 Year
  Sex: Female
  Weight: 112.5 kg

DRUGS (13)
  1. REMICADE [Suspect]
     Indication: COLITIS ULCERATIVE
     Dosage: 500.0
     Route: 042
     Dates: start: 20140401, end: 20140415
  2. FOLIC ACID [Concomitant]
     Route: 065
  3. SIMVASTATIN [Concomitant]
     Route: 065
  4. LATANOPROST [Concomitant]
     Route: 065
  5. LOPERAMIDE [Concomitant]
     Route: 065
  6. MESALAZINE [Concomitant]
     Route: 065
  7. METFORMIN [Concomitant]
     Route: 065
  8. OMEPRAZOLE [Concomitant]
     Route: 065
  9. CODEINE [Concomitant]
     Route: 065
  10. AZATHIOPRINE [Concomitant]
     Route: 065
  11. GLICLAZIDE [Concomitant]
     Route: 065
  12. COLECALCIFEROL [Concomitant]
     Route: 065
  13. CALCIUM CARBONATE [Concomitant]
     Route: 065

REACTIONS (4)
  - Lobar pneumonia [Unknown]
  - Malaise [Unknown]
  - Pyrexia [Unknown]
  - Tachycardia [Unknown]
